FAERS Safety Report 9208005 (Version 1)
Quarter: 2013Q2

REPORT INFORMATION
  Report Type: Spontaneous
  Country: JP (occurrence: JP)
  Receive Date: 20130403
  Receipt Date: 20130403
  Transmission Date: 20140414
  Serious: Yes (Other)
  Sender: FDA-Public Use
  Company Number: JP-PFIZER INC-2013072310

PATIENT
  Age: 80 Year
  Sex: Female

DRUGS (2)
  1. ZITHROMAC [Suspect]
     Indication: INFECTION
     Dosage: 500 MG, 1X/DAY
     Route: 048
     Dates: start: 20130224, end: 20130226
  2. ZITHROMAC [Suspect]
     Indication: PYREXIA

REACTIONS (1)
  - Blood glucose decreased [Recovered/Resolved]
